FAERS Safety Report 9412622 (Version 1)
Quarter: 2013Q3

REPORT INFORMATION
  Report Type: Spontaneous
  Country: US (occurrence: US)
  Receive Date: 20130705
  Receipt Date: 20130705
  Transmission Date: 20140515
  Serious: Yes (Hospitalization)
  Sender: FDA-Public Use
  Company Number: 54973 AE1413

PATIENT
  Sex: 0

DRUGS (1)
  1. HYLAND^S [Suspect]
     Indication: BACK PAIN
     Dosage: UNKNOWN AMONUNT

REACTIONS (1)
  - Accidental exposure to product [None]
